FAERS Safety Report 8519234-X (Version None)
Quarter: 2012Q3

REPORT INFORMATION
  Report Type: 
  Country: None (occurrence: None)
  Receive Date: 20120718
  Receipt Date: 20120711
  Transmission Date: 20120928
  Serious: Yes (Hospitalization)
  Sender: FDA-Public Use
  Company Number: US-ABBOTT-12P-163-0955977-00

PATIENT

DRUGS (3)
  1. HUMIRA [Suspect]
     Indication: RHEUMATOID ARTHRITIS
     Dates: start: 20090101
  2. HUMIRA [Suspect]
     Dates: end: 20110501
  3. HUMIRA [Suspect]
     Dates: end: 20110901

REACTIONS (2)
  - CORONARY ARTERY OCCLUSION [None]
  - DEVICE MATERIAL ISSUE [None]
